FAERS Safety Report 7429614-1 (Version None)
Quarter: 2011Q2

REPORT INFORMATION
  Report Type: 
  Country: None (occurrence: None)
  Receive Date: 20110421
  Receipt Date: 20110412
  Transmission Date: 20111010
  Serious: Yes (Hospitalization, Other)
  Sender: FDA-Public Use
  Company Number: B0713640A

PATIENT
  Age: 79 Year
  Sex: Female

DRUGS (6)
  1. PARACETAMOL [Concomitant]
  2. OMEPRAZOLE [Concomitant]
     Dates: start: 20101022
  3. TOPOTECAN [Suspect]
     Dosage: 1.2MG PER DAY
     Route: 042
     Dates: start: 20101018, end: 20101022
  4. KYTRIL [Suspect]
     Indication: PROPHYLAXIS
     Route: 042
     Dates: start: 20101018, end: 20101022
  5. DEXAMETHASONE [Suspect]
     Indication: LUNG NEOPLASM MALIGNANT
     Route: 042
     Dates: start: 20101018, end: 20101022
  6. NEULASTA [Suspect]
     Indication: CHEMOTHERAPY
     Route: 058
     Dates: start: 20101022, end: 20101022

REACTIONS (1)
  - HEPATITIS CHOLESTATIC [None]
